FAERS Safety Report 15853148 (Version 1)
Quarter: 2019Q1

REPORT INFORMATION
  Report Type: Spontaneous
  Country: US (occurrence: US)
  Receive Date: 20190119
  Receipt Date: 20190119
  Transmission Date: 20190417
  Serious: Yes (Life-Threatening)
  Sender: FDA-Public Use
  Company Number: None

PATIENT

DRUGS (1)
  1. DEXTROAMPHET SACCHARAT, AMPHET ASPARTATE, DEXTROAMPHET SULFATE AND AMPHET SULFAT [Suspect]
     Active Substance: AMPHETAMINE ASPARTATE\AMPHETAMINE SULFATE\DEXTROAMPHETAMINE SACCHARATE\DEXTROAMPHETAMINE SULFATE
     Indication: ATTENTION DEFICIT/HYPERACTIVITY DISORDER
     Dosage: ?          QUANTITY:60 TABLET(S);?
     Route: 048

REACTIONS (7)
  - Migraine [None]
  - Heart rate increased [None]
  - Product substitution issue [None]
  - Disturbance in attention [None]
  - Condition aggravated [None]
  - Irritability [None]
  - Feeling jittery [None]

NARRATIVE: CASE EVENT DATE: 19990118
